FAERS Safety Report 6763810-1 (Version None)
Quarter: 2010Q2

REPORT INFORMATION
  Report Type: 
  Country: None (occurrence: None)
  Receive Date: 20100610
  Receipt Date: 20100531
  Transmission Date: 20101027
  Serious: Yes (Death)
  Sender: FDA-Public Use
  Company Number: IT-ROCHE-708380

PATIENT
  Sex: Male

DRUGS (7)
  1. CAPECITABINE [Suspect]
     Indication: GASTRIC CANCER
     Dosage: DAY 1-14
     Route: 048
     Dates: start: 20100326, end: 20100409
  2. OXALIPLATIN [Suspect]
     Indication: GASTRIC CANCER
     Dosage: ONE DOSE ONLY
     Route: 042
     Dates: start: 20100326, end: 20100326
  3. BLINDED LAPATINIB [Suspect]
     Indication: GASTRIC CANCER
     Dosage: TAKEN DAILY
     Route: 048
     Dates: start: 20100326, end: 20100410
  4. ENALAPRIL MALEATE [Concomitant]
     Dates: start: 19900101, end: 20100410
  5. ALLOPURINOL [Concomitant]
     Dosage: START DATE: 2010
     Dates: end: 20100410
  6. FRUSEMIDE [Concomitant]
     Dates: start: 20100316, end: 20100410
  7. CANRENOATE POTASSIUM [Concomitant]
     Dates: start: 20100316, end: 20100410

REACTIONS (1)
  - DIARRHOEA [None]
